FAERS Safety Report 8294549-1 (Version None)
Quarter: 2012Q2

REPORT INFORMATION
  Report Type: 
  Country: None (occurrence: None)
  Receive Date: 20120418
  Receipt Date: 20120411
  Transmission Date: 20120825
  Serious: Yes (Other)
  Sender: FDA-Public Use
  Company Number: NO-B.I. PHARMACEUTICALS,INC./RIDGEFIELD-2012-SW-00295NO

PATIENT
  Age: 86 Year
  Sex: Female

DRUGS (1)
  1. PRADAXA [Suspect]
     Indication: THROMBOSIS PROPHYLAXIS
     Dosage: 1 DOSAGE FORM TWICE DAILY. THE PAT REDUCED THE DOSE SOME DAYS DUE TO THE SIDE EFFECTS.
     Route: 048
     Dates: start: 20120221, end: 20120315

REACTIONS (3)
  - NAUSEA [None]
  - DIZZINESS [None]
  - DIARRHOEA [None]
